FAERS Safety Report 5135269-1 (Version None)
Quarter: 2006Q4

REPORT INFORMATION
  Report Type: 
  Country: None (occurrence: None)
  Receive Date: 20061024
  Receipt Date: 20061024
  Transmission Date: 20070319
  Serious: No
  Sender: FDA-Public Use
  Company Number: None

PATIENT
  Age: 6 Year
  Sex: Female
  Weight: 20.4119 kg

DRUGS (1)
  1. CHILDREN'S MUCINEX COUGH ADAMS RESPIRATORY THERAPEUTICS [Suspect]
     Indication: COUGH
     Dosage: 1-2 TEASPOONFULS 4 HOURS PO
     Route: 048
     Dates: start: 20061023, end: 20061023

REACTIONS (3)
  - INCORRECT DOSE ADMINISTERED [None]
  - MEDICATION ERROR [None]
  - PHARMACEUTICAL PRODUCT COMPLAINT [None]
